FAERS Safety Report 4880762-X (Version None)
Quarter: 2006Q1

REPORT INFORMATION
  Report Type: 
  Country: None (occurrence: None)
  Receive Date: 20060111
  Receipt Date: 20051201
  Transmission Date: 20060701
  Serious: No
  Sender: FDA-Public Use
  Company Number: 2005S1000259

PATIENT
  Age: 46 Year
  Weight: 84 kg

DRUGS (6)
  1. CUBICIN [Suspect]
     Indication: SEPTIC ARTHRITIS STAPHYLOCOCCAL
     Dosage: 4 MG/KG;Q24H;IV
     Route: 042
     Dates: start: 20051112, end: 20051129
  2. CEFAZOLIN [Concomitant]
  3. NAFCILLIN [Concomitant]
  4. IBUPROFEN [Concomitant]
  5. INDOMETHACIN [Concomitant]
  6. PROBIOTIC [Concomitant]

REACTIONS (4)
  - FLANK PAIN [None]
  - NAUSEA [None]
  - RENAL MASS [None]
  - VOMITING [None]
